FAERS Safety Report 15027105 (Version 3)
Quarter: 2018Q3

REPORT INFORMATION
  Report Type: Spontaneous
  Country: US (occurrence: US)
  Receive Date: 20180619
  Receipt Date: 20180701
  Transmission Date: 20181010
  Serious: No
  Sender: FDA-Public Use
  Company Number: US-UNITED THERAPEUTICS-UNT-2018-008598

PATIENT
  Age: 52 Year
  Sex: Female
  Weight: 63.49 kg

DRUGS (2)
  1. REMODULIN [Suspect]
     Active Substance: TREPROSTINIL
     Indication: PULMONARY HYPERTENSION
     Dosage: 0.031 ?G/KG, CONTINUING
     Route: 058
     Dates: start: 20170811
  2. REMODULIN [Suspect]
     Active Substance: TREPROSTINIL
     Indication: PULMONARY ARTERIAL HYPERTENSION

REACTIONS (9)
  - Infusion site discharge [Unknown]
  - Infusion site pain [Unknown]
  - Burning sensation [Unknown]
  - Social avoidant behaviour [Unknown]
  - Infusion site haemorrhage [Unknown]
  - Pain [Unknown]
  - Infusion site erythema [Unknown]
  - Impaired quality of life [Unknown]
  - Infusion site infection [Unknown]

NARRATIVE: CASE EVENT DATE: 20180611
